FAERS Safety Report 7961891-0 (Version None)
Quarter: 2011Q4

REPORT INFORMATION
  Report Type: 
  Country: None (occurrence: None)
  Receive Date: 20111207
  Receipt Date: 20111122
  Transmission Date: 20120403
  Serious: Yes (Other)
  Sender: FDA-Public Use
  Company Number: JP-ROCHE-1016684

PATIENT
  Age: 51 Year
  Sex: Female

DRUGS (11)
  1. VALCYTE [Suspect]
     Route: 048
     Dates: start: 20090619, end: 20090709
  2. URSO 250 [Concomitant]
     Dosage: STARTED BEFORE THE INITISTION OF VALIXA
     Route: 048
     Dates: end: 20091029
  3. LANSOPRAZOLE [Concomitant]
     Dosage: STARTED BEFORE THE INITISTION OF VALIXA
     Route: 048
     Dates: end: 20091029
  4. VALCYTE [Suspect]
     Route: 048
     Dates: start: 20090814, end: 20091216
  5. PREDNISOLONE [Concomitant]
     Route: 048
     Dates: start: 20090312, end: 20090702
  6. ACETAMINOPHEN [Concomitant]
     Route: 048
     Dates: start: 20090619, end: 20090823
  7. LENDORMIN [Concomitant]
     Dosage: STARTED BEFORE THE INITISTION OF VALIXA
     Route: 048
     Dates: end: 20090823
  8. VALCYTE [Suspect]
     Route: 048
     Dates: start: 20090731, end: 20090813
  9. TEGRETOL [Concomitant]
     Dosage: STARTED BEFORE THE INITISTION OF VALIXA
     Route: 048
     Dates: end: 20090823
  10. VALCYTE [Suspect]
     Indication: CYTOMEGALOVIRUS INFECTION
     Route: 048
     Dates: start: 20090612, end: 20090618
  11. SLOW-K [Concomitant]
     Dosage: STARTED BEFORE THE INITISTION OF VALIXA
     Route: 048

REACTIONS (4)
  - LEUKOPENIA [None]
  - PLATELET COUNT DECREASED [None]
  - RETINAL HAEMORRHAGE [None]
  - ANAEMIA [None]
